FAERS Safety Report 6961906-2 (Version None)
Quarter: 2010Q3

REPORT INFORMATION
  Report Type: 
  Country: None (occurrence: None)
  Receive Date: 20100902
  Receipt Date: 20100825
  Transmission Date: 20110219
  Serious: No
  Sender: FDA-Public Use
  Company Number: US-BIOGENIDEC-2010BI029688

PATIENT
  Sex: Female

DRUGS (2)
  1. TYSABRI [Suspect]
     Indication: MULTIPLE SCLEROSIS
     Route: 042
     Dates: start: 20070220
  2. AMPYRA [Concomitant]
     Indication: GAIT DISTURBANCE

REACTIONS (4)
  - COGNITIVE DISORDER [None]
  - GAIT DISTURBANCE [None]
  - JOINT SPRAIN [None]
  - JOINT SWELLING [None]
